FAERS Safety Report 25265423 (Version 1)
Quarter: 2025Q2

REPORT INFORMATION
  Report Type: Spontaneous
  Country: GR (occurrence: GR)
  Receive Date: 20250502
  Receipt Date: 20250502
  Transmission Date: 20250716
  Serious: Yes (Other)
  Sender: MYLAN
  Company Number: GR-UCBSA-2025023180

PATIENT
  Sex: Male

DRUGS (24)
  1. LEVETIRACETAM [Suspect]
     Active Substance: LEVETIRACETAM
     Indication: Sleep disorder
  2. LEVETIRACETAM [Suspect]
     Active Substance: LEVETIRACETAM
     Route: 065
  3. LEVETIRACETAM [Suspect]
     Active Substance: LEVETIRACETAM
     Route: 065
  4. LEVETIRACETAM [Suspect]
     Active Substance: LEVETIRACETAM
  5. FENFLURAMINE HYDROCHLORIDE [Suspect]
     Active Substance: FENFLURAMINE HYDROCHLORIDE
     Indication: Severe myoclonic epilepsy of infancy
  6. FENFLURAMINE HYDROCHLORIDE [Suspect]
     Active Substance: FENFLURAMINE HYDROCHLORIDE
     Route: 065
  7. FENFLURAMINE HYDROCHLORIDE [Suspect]
     Active Substance: FENFLURAMINE HYDROCHLORIDE
     Route: 065
  8. FENFLURAMINE HYDROCHLORIDE [Suspect]
     Active Substance: FENFLURAMINE HYDROCHLORIDE
  9. DOM [Suspect]
     Active Substance: DOM
     Indication: Product used for unknown indication
  10. DOM [Suspect]
     Active Substance: DOM
     Route: 065
  11. DOM [Suspect]
     Active Substance: DOM
     Route: 065
  12. DOM [Suspect]
     Active Substance: DOM
  13. VALPROIC ACID [Suspect]
     Active Substance: VALPROIC ACID
     Indication: Product used for unknown indication
  14. VALPROIC ACID [Suspect]
     Active Substance: VALPROIC ACID
     Route: 065
  15. VALPROIC ACID [Suspect]
     Active Substance: VALPROIC ACID
     Route: 065
  16. VALPROIC ACID [Suspect]
     Active Substance: VALPROIC ACID
  17. CLOBAZAM [Suspect]
     Active Substance: CLOBAZAM
     Indication: Product used for unknown indication
  18. CLOBAZAM [Suspect]
     Active Substance: CLOBAZAM
     Route: 065
  19. CLOBAZAM [Suspect]
     Active Substance: CLOBAZAM
     Route: 065
  20. CLOBAZAM [Suspect]
     Active Substance: CLOBAZAM
  21. MELATONIN [Suspect]
     Active Substance: MELATONIN
     Indication: Product used for unknown indication
  22. MELATONIN [Suspect]
     Active Substance: MELATONIN
     Route: 065
  23. MELATONIN [Suspect]
     Active Substance: MELATONIN
     Route: 065
  24. MELATONIN [Suspect]
     Active Substance: MELATONIN

REACTIONS (7)
  - Petit mal epilepsy [Recovered/Resolved]
  - Seizure [Unknown]
  - Behaviour disorder [Recovering/Resolving]
  - Thermal burn [Unknown]
  - Febrile convulsion [Unknown]
  - Decreased appetite [Unknown]
  - Off label use [Unknown]
